FAERS Safety Report 16683988 (Version 1)
Quarter: 2019Q3

REPORT INFORMATION
  Report Type: Spontaneous
  Country: US (occurrence: US)
  Receive Date: 20190808
  Receipt Date: 20190808
  Transmission Date: 20191004
  Serious: Yes (Hospitalization, Other)
  Sender: FDA-Public Use
  Company Number: US-SEATTLE GENETICS-2019SGN02735

PATIENT
  Age: 65 Year
  Sex: Male

DRUGS (1)
  1. ADCETRIS [Suspect]
     Active Substance: BRENTUXIMAB VEDOTIN
     Indication: PRODUCT USED FOR UNKNOWN INDICATION
     Route: 065

REACTIONS (6)
  - Liver function test abnormal [Unknown]
  - Ileus paralytic [Unknown]
  - Abdominal pain [Unknown]
  - Coma [Unknown]
  - Confusional state [Unknown]
  - Pancreatitis [Unknown]
